FAERS Safety Report 21482293 (Version 2)
Quarter: 2022Q4

REPORT INFORMATION
  Report Type: Report from Study
  Country: BR (occurrence: BR)
  Receive Date: 20221020
  Receipt Date: 20221123
  Transmission Date: 20230113
  Serious: Yes (Life-Threatening, Hospitalization)
  Sender: FDA-Public Use
  Company Number: BR-ALNYLAM PHARMACEUTICALS, INC.-ALN-2022-003693

PATIENT

DRUGS (80)
  1. PATISIRAN SODIUM [Suspect]
     Active Substance: PATISIRAN SODIUM
     Indication: Cardiac amyloidosis
     Dosage: 0.3 MILLIGRAM/KILOGRAM, Q3W
     Route: 042
     Dates: start: 20210520
  2. PATISIRAN SODIUM [Suspect]
     Active Substance: PATISIRAN SODIUM
     Dosage: 0.3 MILLIGRAM/KILOGRAM, Q3W
     Route: 042
     Dates: start: 20220826
  3. CIMETIDINE [Concomitant]
     Active Substance: CIMETIDINE
     Indication: Premedication
     Dosage: 200 MILLIGRAM
     Route: 048
     Dates: start: 20210520
  4. CIMETIDINE [Concomitant]
     Active Substance: CIMETIDINE
     Dosage: 200 MILLIGRAM
     Route: 048
     Dates: start: 20220826
  5. ACETAMINOPHEN [Concomitant]
     Active Substance: ACETAMINOPHEN
     Indication: Premedication
     Dosage: 500 MILLIGRAM
     Route: 065
     Dates: start: 20210520
  6. ACETAMINOPHEN [Concomitant]
     Active Substance: ACETAMINOPHEN
     Dosage: 500 MILLIGRAM
     Route: 065
     Dates: start: 20220826
  7. DEXAMETHASONE [Concomitant]
     Active Substance: DEXAMETHASONE
     Indication: Premedication
     Dosage: 10 MILLIGRAM
     Route: 042
     Dates: start: 20210520
  8. DEXAMETHASONE [Concomitant]
     Active Substance: DEXAMETHASONE
     Dosage: 10 MILLIGRAM
     Route: 042
     Dates: start: 20220826
  9. DIPHENHYDRAMINE [Concomitant]
     Active Substance: DIPHENHYDRAMINE
     Indication: Premedication
     Dosage: 50 MILLIGRAM
     Route: 042
     Dates: start: 20210520
  10. DIPHENHYDRAMINE [Concomitant]
     Active Substance: DIPHENHYDRAMINE
     Dosage: 50 MILLIGRAM
     Route: 042
     Dates: start: 20220826
  11. SPIRONOLACTONE [Concomitant]
     Active Substance: SPIRONOLACTONE
     Indication: Cardiac disorder
     Dosage: 25 MILLIGRAM, QD
     Route: 048
     Dates: start: 202010
  12. SPIRONOLACTONE [Concomitant]
     Active Substance: SPIRONOLACTONE
     Indication: Systemic bacterial infection
     Dosage: 12.5 MILLIGRAM, QD
     Route: 048
     Dates: start: 20220922, end: 20220922
  13. ENALAPRIL [Concomitant]
     Active Substance: ENALAPRIL
     Indication: Cardiac disorder
     Dosage: 5 MILLIGRAM, BID
     Route: 048
     Dates: start: 202010
  14. ENALAPRIL [Concomitant]
     Active Substance: ENALAPRIL
     Indication: Systemic bacterial infection
     Dosage: 10 MILLIGRAM, BID
     Route: 048
     Dates: start: 20220918, end: 20220922
  15. ENALAPRIL [Concomitant]
     Active Substance: ENALAPRIL
     Dosage: 10 MILLIGRAM, BID
     Route: 048
     Dates: start: 20221006
  16. FUROSEMIDE [Concomitant]
     Active Substance: FUROSEMIDE
     Indication: Cardiac disorder
     Dosage: 40 MILLIGRAM, QID
     Route: 048
     Dates: start: 20210702, end: 20220915
  17. FUROSEMIDE [Concomitant]
     Active Substance: FUROSEMIDE
     Indication: Systemic bacterial infection
     Dosage: 40 MILLIGRAM, SINGLE (ONCE)
     Route: 042
     Dates: start: 20220919, end: 20220919
  18. FUROSEMIDE [Concomitant]
     Active Substance: FUROSEMIDE
     Dosage: 20 MILLIGRAM, SINGLE (ONCE)
     Route: 042
     Dates: start: 20220922, end: 20220922
  19. FUROSEMIDE [Concomitant]
     Active Substance: FUROSEMIDE
     Dosage: 40 MILLIGRAM, ONCE
     Route: 048
     Dates: start: 20220922, end: 20220922
  20. DOMPERIDONE [Concomitant]
     Active Substance: DOMPERIDONE
     Indication: Dyspepsia
     Dosage: 10 MILLIGRAM, TID
     Route: 048
     Dates: start: 2019
  21. MINERALS\VITAMINS [Concomitant]
     Active Substance: MINERALS\VITAMINS
     Indication: Vitamin supplementation
     Dosage: 1 DOSAGE FORM, QD
     Route: 048
     Dates: start: 20210923
  22. MAGNE B6 [Concomitant]
     Active Substance: MAGNESIUM\PYRIDOXINE
     Indication: Muscle spasms
     Dosage: 2 DOSAGE FORM, BID
     Route: 048
     Dates: start: 20210909
  23. MAGNE B6 [Concomitant]
     Active Substance: MAGNESIUM\PYRIDOXINE
     Indication: Muscle spasms
  24. PANTOPRAZOLE [Concomitant]
     Active Substance: PANTOPRAZOLE
     Indication: Gastritis
     Dosage: 40 MILLIGRAM, QD
     Route: 048
     Dates: start: 2019
  25. SYSTANE ULTRA [Concomitant]
     Active Substance: POLYETHYLENE GLYCOL 400\PROPYLENE GLYCOL
     Indication: Dry eye
     Dosage: 1-2 DROP
     Route: 047
     Dates: start: 2019
  26. SYSTANE ULTRA [Concomitant]
     Active Substance: POLYETHYLENE GLYCOL 400\PROPYLENE GLYCOL
     Indication: Vitreous opacities
  27. SYSTANE ULTRA [Concomitant]
     Active Substance: POLYETHYLENE GLYCOL 400\PROPYLENE GLYCOL
     Indication: Cataract
  28. SYSTANE ULTRA [Concomitant]
     Active Substance: POLYETHYLENE GLYCOL 400\PROPYLENE GLYCOL
     Indication: Glaucoma
  29. METAMIZOLE SODIUM [Concomitant]
     Active Substance: METAMIZOLE SODIUM
     Indication: Pancreatitis acute
     Dosage: 1 GRAM, PRN
     Route: 048
     Dates: start: 20220729
  30. METAMIZOLE SODIUM [Concomitant]
     Active Substance: METAMIZOLE SODIUM
     Indication: Systemic bacterial infection
     Dosage: 40 DROPS, QID
     Route: 048
     Dates: start: 20220928, end: 20220928
  31. METAMIZOLE SODIUM [Concomitant]
     Active Substance: METAMIZOLE SODIUM
     Dosage: 40 DROPS, QID
     Route: 048
     Dates: start: 20221001, end: 20221002
  32. Tylex [Concomitant]
     Indication: Pancreatitis acute
     Dosage: 30 MILLIGRAM, PRN
     Route: 048
     Dates: start: 20220729
  33. RIVAROXABAN [Concomitant]
     Active Substance: RIVAROXABAN
     Indication: Deep vein thrombosis
     Dosage: 20 MILLIGRAM, QD
     Route: 048
     Dates: start: 20220820, end: 20220916
  34. MEROPENEM [Concomitant]
     Active Substance: MEROPENEM
     Indication: Systemic bacterial infection
     Dosage: 2000 MILLIGRAM, TID
     Route: 042
     Dates: start: 20220916, end: 20220918
  35. OMEPRAZOLE [Concomitant]
     Active Substance: OMEPRAZOLE
     Indication: Systemic bacterial infection
     Dosage: 40 MILLIGRAM, QD
     Route: 042
     Dates: start: 20220916, end: 20220916
  36. OMEPRAZOLE [Concomitant]
     Active Substance: OMEPRAZOLE
     Dosage: 20 MILLIGRAM, QD
     Route: 048
     Dates: start: 20220917, end: 20221001
  37. OMEPRAZOLE [Concomitant]
     Active Substance: OMEPRAZOLE
     Dosage: 40 MILLIGRAM, QD
     Route: 042
     Dates: start: 20221002, end: 20221003
  38. UNSPECIFIED INGREDIENT [Concomitant]
     Active Substance: UNSPECIFIED INGREDIENT
     Indication: Systemic bacterial infection
     Dosage: 5000 INTERNATIONAL UNIT, BID
     Route: 058
     Dates: start: 20220916, end: 20220919
  39. BROMOPRIDE [Concomitant]
     Active Substance: BROMOPRIDE
     Indication: Systemic bacterial infection
     Dosage: 10 MILLIGRAM, TID
     Route: 042
     Dates: start: 20220917
  40. CEFTRIAXONE [Concomitant]
     Active Substance: CEFTRIAXONE
     Indication: Systemic bacterial infection
     Dosage: 1000 MILLIGRAM, BID
     Route: 042
     Dates: start: 20220920, end: 20220923
  41. ASPIRIN [Concomitant]
     Active Substance: ASPIRIN
     Indication: Systemic bacterial infection
     Dosage: 100 MILLIGRAM, QD
     Route: 048
     Dates: start: 20220922, end: 20220925
  42. ASPIRIN [Concomitant]
     Active Substance: ASPIRIN
     Dosage: 100 MILLIGRAM, QD
     Route: 048
     Dates: start: 20221004, end: 20221014
  43. ATORVASTATIN [Concomitant]
     Active Substance: ATORVASTATIN
     Indication: Systemic bacterial infection
     Dosage: 40 MILLIGRAM, QD
     Route: 048
     Dates: start: 20220922
  44. CARVEDILOL [Concomitant]
     Active Substance: CARVEDILOL
     Indication: Systemic bacterial infection
     Dosage: 3.12 MILLIGRAM, BID
     Route: 048
     Dates: start: 20220922, end: 20220922
  45. CARVEDILOL [Concomitant]
     Active Substance: CARVEDILOL
     Dosage: 6.25 MILLIGRAM, BID
     Route: 048
     Dates: start: 20220927, end: 20221001
  46. ENOXAPARIN [Concomitant]
     Active Substance: ENOXAPARIN
     Indication: Systemic bacterial infection
     Dosage: 40 MILLIGRAM, QD
     Route: 058
     Dates: start: 20220922
  47. PIPERACILLIN SODIUM\TAZOBACTAM SODIUM [Concomitant]
     Active Substance: PIPERACILLIN SODIUM\TAZOBACTAM SODIUM
     Indication: Systemic bacterial infection
     Dosage: 4500 MILLIGRAM, BID
     Route: 042
     Dates: start: 20220923, end: 20220926
  48. NOREPINEPHRINE [Concomitant]
     Active Substance: NOREPINEPHRINE
     Indication: Systemic bacterial infection
     Dosage: 4 MILLIGRAM CONTINUOUS
     Route: 042
     Dates: start: 20220926, end: 20220926
  49. NOREPINEPHRINE [Concomitant]
     Active Substance: NOREPINEPHRINE
     Dosage: 16 MILLIGRAM ONCE
     Route: 042
     Dates: start: 20221001, end: 20221001
  50. NOREPINEPHRINE [Concomitant]
     Active Substance: NOREPINEPHRINE
     Dosage: 16 MILLIGRAM QD
     Route: 042
     Dates: start: 20221003, end: 20221004
  51. SUCCINYLCHOLINE [Concomitant]
     Active Substance: SUCCINYLCHOLINE
     Indication: Systemic bacterial infection
     Dosage: 100 MILLIGRAM SINGLE (ONCE)
     Route: 042
     Dates: start: 20221001, end: 20221001
  52. FENTANYL [Concomitant]
     Active Substance: FENTANYL
     Indication: Systemic bacterial infection
     Dosage: 2.5 MILLIGRAM SINGLE (ONCE)
     Route: 042
     Dates: start: 20221001, end: 20221001
  53. MIDAZOLAM [Concomitant]
     Active Substance: MIDAZOLAM
     Indication: Systemic bacterial infection
     Dosage: 100 MILLIGRAM SINGLE (ONCE)
     Route: 042
     Dates: start: 20221001, end: 20221001
  54. ETOMIDATE [Concomitant]
     Active Substance: ETOMIDATE
     Indication: Systemic bacterial infection
     Dosage: 20 MILLIGRAM SINGLE (ONCE)
     Route: 042
     Dates: start: 20221001, end: 20221001
  55. CALCIUM GLUCONATE [Concomitant]
     Active Substance: CALCIUM GLUCONATE
     Indication: Systemic bacterial infection
     Dosage: 10 MILLIGRAM, SINGLE (ONCE)
     Route: 042
     Dates: start: 20221001, end: 20221001
  56. INSULIN HUMAN [Concomitant]
     Active Substance: INSULIN HUMAN
     Indication: Systemic bacterial infection
     Dosage: 10 INTERNATIONAL UNIT SINGLE (ONCE)
     Route: 058
     Dates: start: 20221001, end: 20221001
  57. VANCOMYCIN [Concomitant]
     Active Substance: VANCOMYCIN
     Indication: Systemic bacterial infection
     Dosage: 1000 MILLIGRAM SINGLE (ONCE)
     Route: 042
     Dates: start: 20221001, end: 20221001
  58. VANCOMYCIN [Concomitant]
     Active Substance: VANCOMYCIN
     Dosage: 1150 MILLIGRAM SINGLE (ONCE)
     Route: 042
     Dates: start: 20221004, end: 20221004
  59. VANCOMYCIN [Concomitant]
     Active Substance: VANCOMYCIN
     Dosage: 1700 MILLIGRAM SINGLE (ONCE)
     Route: 042
     Dates: start: 20221006, end: 20221006
  60. VANCOMYCIN [Concomitant]
     Active Substance: VANCOMYCIN
     Dosage: 750 MILLIGRAM SINGLE (ONCE)
     Route: 042
     Dates: start: 20221008, end: 20221008
  61. VANCOMYCIN [Concomitant]
     Active Substance: VANCOMYCIN
     Dosage: 1700 MILLIGRAM QD
     Route: 042
     Dates: start: 20221008, end: 20221009
  62. DOBUTAMINE [Concomitant]
     Active Substance: DOBUTAMINE HYDROCHLORIDE
     Indication: Systemic bacterial infection
     Dosage: 24 MILLIGRAM SINGLE (ONCE)
     Route: 042
     Dates: start: 20221001, end: 20221001
  63. DOBUTAMINE [Concomitant]
     Active Substance: DOBUTAMINE HYDROCHLORIDE
     Dosage: 34 MILLIGRAM SINGLE (ONCE)
     Route: 042
     Dates: start: 20221002, end: 20221002
  64. DOBUTAMINE [Concomitant]
     Active Substance: DOBUTAMINE HYDROCHLORIDE
     Dosage: 24 MILLIGRAM BID
     Route: 042
     Dates: start: 20221004
  65. HYDROCORTISONE [Concomitant]
     Active Substance: HYDROCORTISONE
     Indication: Systemic bacterial infection
     Dosage: 50 MILLIGRAM, QID
     Route: 042
     Dates: start: 20221001, end: 20221007
  66. VASOPRESSIN [Concomitant]
     Active Substance: VASOPRESSIN
     Indication: Systemic bacterial infection
     Dosage: 20 MILLIGRAM CONTINUOUS
     Route: 042
     Dates: start: 20221002, end: 20221002
  67. SODIUM NITROPRUSSIDE [Concomitant]
     Active Substance: SODIUM NITROPRUSSIDE
     Indication: Systemic bacterial infection
     Dosage: 50 MILLIGRAM, QD
     Route: 042
     Dates: start: 20221004, end: 20221008
  68. QUETIAPINE [Concomitant]
     Active Substance: QUETIAPINE
     Indication: Systemic bacterial infection
     Dosage: 50 MILLIGRAM SINGLE (ONCE)
     Route: 048
     Dates: start: 20221004, end: 20221004
  69. QUETIAPINE [Concomitant]
     Active Substance: QUETIAPINE
     Dosage: 25 MILLIGRAM, QD
     Route: 048
     Dates: start: 20221006, end: 20221006
  70. DEXMEDETOMIDINE [Concomitant]
     Active Substance: DEXMEDETOMIDINE
     Indication: Systemic bacterial infection
     Dosage: 200 MILLIGRAM SINGLE (ONCE)
     Route: 042
     Dates: start: 20221004, end: 20221004
  71. CAPTOPRIL [Concomitant]
     Active Substance: CAPTOPRIL
     Indication: Systemic bacterial infection
     Dosage: 25 MILLIGRAM, SINGLE (ONCE)
     Route: 048
     Dates: start: 20221005, end: 20221005
  72. METHADONE [Concomitant]
     Active Substance: METHADONE HYDROCHLORIDE
     Indication: Systemic bacterial infection
     Dosage: 5 MILLIGRAM, BID
     Dates: start: 20221006, end: 20221007
  73. NPH INSULIN [Concomitant]
     Active Substance: INSULIN BEEF
     Indication: Systemic bacterial infection
     Dosage: 10 INTERNATIONAL UNIT, QD
     Route: 058
     Dates: start: 20221007, end: 20221008
  74. NPH INSULIN [Concomitant]
     Active Substance: INSULIN BEEF
     Dosage: 10 INTERNATIONAL UNIT, QD
     Route: 058
     Dates: start: 20221009, end: 20221010
  75. NPH INSULIN [Concomitant]
     Active Substance: INSULIN BEEF
     Dosage: 10 INTERNATIONAL UNIT, QD
     Route: 058
     Dates: start: 20221012
  76. AMLODIPINE [Concomitant]
     Active Substance: AMLODIPINE BESYLATE
     Indication: Systemic bacterial infection
     Dosage: 5 MILLIGRAM, BID
     Route: 048
     Dates: start: 20221008, end: 20221010
  77. BRIMONIDINE TARTRATE [Concomitant]
     Active Substance: BRIMONIDINE TARTRATE
     Indication: Dry eye
     Dosage: 2 DOSAGE FORM, BID
     Route: 047
     Dates: start: 2017
  78. BRIMONIDINE TARTRATE [Concomitant]
     Active Substance: BRIMONIDINE TARTRATE
     Indication: Cataract
  79. BRIMONIDINE TARTRATE [Concomitant]
     Active Substance: BRIMONIDINE TARTRATE
     Indication: Glaucoma
  80. BRIMONIDINE TARTRATE [Concomitant]
     Active Substance: BRIMONIDINE TARTRATE
     Indication: Vitreous opacities

REACTIONS (2)
  - Cardiac arrest [Recovered/Resolved]
  - Atrial fibrillation [Recovered/Resolved]

NARRATIVE: CASE EVENT DATE: 20221008
